FAERS Safety Report 26157657 (Version 1)
Quarter: 2025Q4

REPORT INFORMATION
  Report Type: Spontaneous
  Country: US (occurrence: None)
  Receive Date: 20251212
  Receipt Date: 20251212
  Transmission Date: 20260117
  Serious: Yes (Other)
  Sender: FDA-CTU
  Company Number: None

PATIENT
  Age: 78 Year
  Sex: Female

DRUGS (2)
  1. VYNDAMAX [Suspect]
     Active Substance: TAFAMIDIS
     Dosage: FREQUENCY : DAILY;
     Route: 048
  2. FLECAINIDE [Suspect]
     Active Substance: FLECAINIDE

REACTIONS (3)
  - Atrial fibrillation [None]
  - Renal pain [None]
  - Flank pain [None]
